FAERS Safety Report 24095412 (Version 2)
Quarter: 2024Q3

REPORT INFORMATION
  Report Type: Report from Study
  Country: US (occurrence: US)
  Receive Date: 20240716
  Receipt Date: 20240906
  Transmission Date: 20241017
  Serious: Yes (Hospitalization)
  Sender: ABBVIE
  Company Number: US-ABBVIE-5836900

PATIENT
  Sex: Female

DRUGS (1)
  1. RINVOQ [Suspect]
     Active Substance: UPADACITINIB
     Indication: Dermatitis atopic
     Route: 048
     Dates: start: 20230520

REACTIONS (4)
  - Post-acute COVID-19 syndrome [Recovering/Resolving]
  - Thrombosis [Unknown]
  - Rash [Recovering/Resolving]
  - Pruritus [Unknown]
